FAERS Safety Report 16975859 (Version 7)
Quarter: 2020Q4

REPORT INFORMATION
  Report Type: Report from Study
  Country: CA (occurrence: CA)
  Receive Date: 20191030
  Receipt Date: 20201028
  Transmission Date: 20210113
  Serious: Yes (Hospitalization, Other)
  Sender: FDA-Public Use
  Company Number: CA-GILEAD-2019-0434335

PATIENT
  Age: 74 Year
  Sex: Female
  Weight: 54.4 kg

DRUGS (15)
  1. CYCLOPHOSPHAMIDE. [Suspect]
     Active Substance: CYCLOPHOSPHAMIDE
     Indication: BONE MARROW CONDITIONING REGIMEN
     Dosage: 780 MG, QD
     Route: 042
     Dates: start: 20191010, end: 20191012
  2. FLUDARABINE [Suspect]
     Active Substance: FLUDARABINE PHOSPHATE
     Indication: BONE MARROW CONDITIONING REGIMEN
     Dosage: 46.8 MG, QD
     Route: 042
     Dates: start: 20191010, end: 20191012
  3. RITUXIMAB. [Suspect]
     Active Substance: RITUXIMAB
     Indication: CHEMOTHERAPY
     Dosage: 590 MG
     Route: 065
     Dates: start: 20190924
  4. OXALIPLATIN. [Suspect]
     Active Substance: OXALIPLATIN
     Indication: CHEMOTHERAPY
     Route: 065
  5. ACETAMINOPHEN. [Concomitant]
     Active Substance: ACETAMINOPHEN
  6. MEROPENEM. [Concomitant]
     Active Substance: MEROPENEM
  7. RITUXIMAB. [Suspect]
     Active Substance: RITUXIMAB
     Dosage: 160 MG
     Route: 065
     Dates: start: 20190924
  8. MUCOSITIS MOUTHWASH [Concomitant]
  9. AXICABTAGENE CILOLEUCEL [Suspect]
     Active Substance: AXICABTAGENE CILOLEUCEL
     Indication: NON-HODGKIN^S LYMPHOMA
     Dosage: 106.4 X 10^6 CAR-T CELLS TOTAL
     Route: 042
     Dates: start: 20191015, end: 20191015
  10. RITUXIMAB. [Suspect]
     Active Substance: RITUXIMAB
     Dosage: 1580 MG
     Route: 065
     Dates: start: 20190925
  11. NORMAL SALINE [Concomitant]
     Active Substance: SODIUM CHLORIDE
  12. VITAMIN D [COLECALCIFEROL] [Concomitant]
     Active Substance: CHOLECALCIFEROL
  13. GEMCITABINE. [Suspect]
     Active Substance: GEMCITABINE
     Indication: CHEMOTHERAPY
     Route: 065
  14. CLONAZEPAM. [Concomitant]
     Active Substance: CLONAZEPAM
  15. MULTIVITAMINS [VITAMINS NOS] [Concomitant]
     Active Substance: VITAMINS

REACTIONS (8)
  - Immune effector cell-associated neurotoxicity syndrome [Recovered/Resolved]
  - Visual impairment [Recovered/Resolved]
  - Confusional state [Recovered/Resolved]
  - Cytokine release syndrome [Recovered/Resolved]
  - Hallucination [Recovered/Resolved]
  - Muscular weakness [Recovered/Resolved]
  - Gait disturbance [Recovered/Resolved]
  - Pyrexia [Recovered/Resolved]

NARRATIVE: CASE EVENT DATE: 20191020
